FAERS Safety Report 19593059 (Version 2)
Quarter: 2021Q3

REPORT INFORMATION
  Report Type: Report from Study
  Country: AU (occurrence: AU)
  Receive Date: 20210722
  Receipt Date: 20210729
  Transmission Date: 20211014
  Serious: Yes (Hospitalization)
  Sender: FDA-Public Use
  Company Number: AU-JNJFOC-20201254867

PATIENT
  Age: 77 Year
  Sex: Female

DRUGS (4)
  1. DARATUMUMAB [Suspect]
     Active Substance: DARATUMUMAB
     Dosage: C7 X 1 DOSE?NEXT DOSE: 13?JUL?2021
     Route: 065
     Dates: start: 20210629
  2. DARATUMUMAB [Suspect]
     Active Substance: DARATUMUMAB
     Dosage: C8 D1 DOSE
     Route: 065
     Dates: start: 20210715
  3. DARATUMUMAB [Suspect]
     Active Substance: DARATUMUMAB
     Indication: PLASMA CELL MYELOMA
     Route: 042
     Dates: start: 20201118
  4. DARATUMUMAB [Suspect]
     Active Substance: DARATUMUMAB
     Dosage: C6 X 2 DOSES
     Route: 065
     Dates: start: 20210428, end: 20210510

REACTIONS (2)
  - Weight increased [Unknown]
  - Malaise [Unknown]
